FAERS Safety Report 8731766 (Version 3)
Quarter: 2014Q3

REPORT INFORMATION
  Report Type: Spontaneous
  Country: US (occurrence: US)
  Receive Date: 20120820
  Receipt Date: 20140820
  Transmission Date: 20150326
  Serious: Yes (Death, Other)
  Sender: FDA-Public Use
  Company Number: PHEH2012US016170

PATIENT
  Sex: Male

DRUGS (7)
  1. ZOMETA [Suspect]
     Active Substance: ZOLEDRONIC ACID
     Dosage: UNK UKN, UNK
     Route: 042
  2. DEXAMETHASONE. [Concomitant]
     Active Substance: DEXAMETHASONE
  3. REVLIMID [Concomitant]
     Active Substance: LENALIDOMIDE
  4. AREDIA [Suspect]
     Active Substance: PAMIDRONATE DISODIUM
     Dosage: UNK UKN, UNK
     Route: 041
  5. ASPIRIN. [Concomitant]
     Active Substance: ASPIRIN
     Dosage: 81 MG, QD
  6. CYTOXAN [Concomitant]
     Active Substance: CYCLOPHOSPHAMIDE
  7. CHEMOTHERAPEUTICS [Concomitant]
     Active Substance: UNSPECIFIED INGREDIENT
     Dates: start: 20080509

REACTIONS (111)
  - Bundle branch block right [Unknown]
  - Atrial fibrillation [Unknown]
  - Osteolysis [Unknown]
  - Seborrhoeic keratosis [Unknown]
  - Lymphoma [Unknown]
  - Dental caries [Unknown]
  - Squamous cell carcinoma of skin [Unknown]
  - Fatigue [Unknown]
  - Faeces hard [Unknown]
  - Gait disturbance [Unknown]
  - Cough [Unknown]
  - Atrial flutter [Unknown]
  - Anaemia [Recovered/Resolved]
  - Aortic valve incompetence [Unknown]
  - Neuropathy peripheral [Unknown]
  - Sick sinus syndrome [Unknown]
  - Sinus arrhythmia [Unknown]
  - Arteriosclerosis coronary artery [Unknown]
  - Syncope [Unknown]
  - Blepharitis [Unknown]
  - Leukopenia [Unknown]
  - Injury [Unknown]
  - Cataract nuclear [Unknown]
  - Keratoacanthoma [Unknown]
  - Proteinuria [Unknown]
  - Intervertebral disc space narrowing [Unknown]
  - Pulmonary congestion [Unknown]
  - Aortic valve sclerosis [Unknown]
  - Local swelling [Unknown]
  - Deformity [Unknown]
  - Tremor [Unknown]
  - Erythema [Unknown]
  - Paraproteinaemia [Unknown]
  - Spinal osteoarthritis [Unknown]
  - Hyperlipidaemia [Unknown]
  - Jaw disorder [Unknown]
  - Tooth loss [Unknown]
  - Bone lesion [Unknown]
  - Herpes zoster infection neurological [Unknown]
  - Hiatus hernia [Unknown]
  - Anxiety [Unknown]
  - Cardiac murmur [Unknown]
  - Diverticulum intestinal [Unknown]
  - Large intestine polyp [Unknown]
  - Vision blurred [Unknown]
  - Arthritis [Unknown]
  - Tooth fracture [Unknown]
  - Infection [Unknown]
  - Hypokalaemia [Unknown]
  - Nocturia [Unknown]
  - Skin lesion [Unknown]
  - Hypoaesthesia [Unknown]
  - Dyspnoea [Unknown]
  - Bradycardia [Unknown]
  - Monoclonal gammopathy [Unknown]
  - Plasma cell myeloma [Unknown]
  - Atrioventricular block [Unknown]
  - Mitral valve incompetence [Unknown]
  - Haemorrhoids [Unknown]
  - Adenoma benign [Unknown]
  - Aortic calcification [Unknown]
  - Right atrial dilatation [Unknown]
  - Pulmonary valve incompetence [Unknown]
  - Oropharyngeal pain [Unknown]
  - Chest pain [Unknown]
  - Emotional distress [Unknown]
  - Constipation [Unknown]
  - Pyrexia [Unknown]
  - Death [Fatal]
  - Hyperhomocysteinaemia [Unknown]
  - Pneumonia [Recovered/Resolved]
  - Tachycardia [Recovered/Resolved]
  - Gout [Unknown]
  - Tendon rupture [Unknown]
  - Ear pain [Unknown]
  - Dysphonia [Unknown]
  - Muscle strain [Unknown]
  - Gastrooesophageal reflux disease [Unknown]
  - Blood calcium decreased [Unknown]
  - Arthralgia [Unknown]
  - Testicular atrophy [Unknown]
  - Tooth disorder [Unknown]
  - Pleural effusion [Unknown]
  - Osteosclerosis [Unknown]
  - Macular degeneration [Unknown]
  - Multiple fractures [Unknown]
  - Mitral valve sclerosis [Unknown]
  - Osteonecrosis of jaw [Unknown]
  - Anhedonia [Unknown]
  - Thrombocytopenia [Unknown]
  - Tendonitis [Unknown]
  - Swelling face [Unknown]
  - Pain in extremity [Unknown]
  - Atrophy [Unknown]
  - Pituitary tumour benign [Unknown]
  - Hypertension [Unknown]
  - Coronary artery disease [Unknown]
  - Periodontitis [Unknown]
  - Renal failure chronic [Unknown]
  - Aplastic anaemia [Unknown]
  - Chondropathy [Unknown]
  - Exostosis [Unknown]
  - Soft tissue mass [Unknown]
  - Osteoarthritis [Unknown]
  - Eye pruritus [Unknown]
  - Rhinorrhoea [Unknown]
  - Onychomycosis [Unknown]
  - Left atrial dilatation [Unknown]
  - Hypogeusia [Unknown]
  - Oedema peripheral [Unknown]
  - Chills [Unknown]
